FAERS Safety Report 6808380-4 (Version None)
Quarter: 2010Q2

REPORT INFORMATION
  Report Type: 
  Country: None (occurrence: None)
  Receive Date: 20100629
  Receipt Date: 20090702
  Transmission Date: 20101027
  Serious: No
  Sender: FDA-Public Use
  Company Number: US-PFIZER INC-2009216236

PATIENT
  Age: 55 Year
  Sex: Female

DRUGS (1)
  1. ZYVOX [Suspect]
     Indication: SKIN INFECTION
     Dosage: 600 MG, 2X/DAY
     Dates: start: 20090401, end: 20090101

REACTIONS (2)
  - DIARRHOEA [None]
  - NAUSEA [None]
